FAERS Safety Report 6651292-X (Version None)
Quarter: 2010Q1

REPORT INFORMATION
  Report Type: 
  Country: None (occurrence: None)
  Receive Date: 20100325
  Receipt Date: 20100317
  Transmission Date: 20100710
  Serious: Yes (Other)
  Sender: FDA-Public Use
  Company Number: GB-BAXTER-2010BH007667

PATIENT
  Sex: Female

DRUGS (2)
  1. DEXTROSE 5% [Suspect]
     Indication: GASTROINTESTINAL CARCINOMA
     Route: 042
     Dates: start: 20100317, end: 20100317
  2. CARBOPLATIN [Suspect]
     Indication: GASTROINTESTINAL CARCINOMA
     Route: 042
     Dates: start: 20100317, end: 20100317

REACTIONS (1)
  - ANAPHYLACTIC REACTION [None]
